FAERS Safety Report 4501316-0 (Version None)
Quarter: 2004Q4

REPORT INFORMATION
  Report Type: 
  Country: None (occurrence: None)
  Receive Date: 20041110
  Receipt Date: 20041102
  Transmission Date: 20050328
  Serious: Yes (Hospitalization)
  Sender: FDA-Public Use
  Company Number: 2004242416FR

PATIENT
  Sex: Male

DRUGS (2)
  1. TRELSTAR [Suspect]
     Indication: PROSTATE CANCER
     Dosage: 11.25 MG, 1ST INJECTION, INTRAMUSCULAR
     Route: 030
     Dates: start: 20041019, end: 20041019
  2. ASPEGIC 325 [Concomitant]

REACTIONS (4)
  - INJECTION SITE HAEMORRHAGE [None]
  - INJECTION SITE INFLAMMATION [None]
  - INJECTION SITE PAIN [None]
  - PAIN IN EXTREMITY [None]
